FAERS Safety Report 4776601-8 (Version None)
Quarter: 2005Q3

REPORT INFORMATION
  Report Type: 
  Country: None (occurrence: None)
  Receive Date: 20050921
  Receipt Date: 20050908
  Transmission Date: 20060218
  Serious: Yes (Hospitalization, Other)
  Sender: FDA-Public Use
  Company Number: 2005125898

PATIENT
  Age: 54 Year
  Sex: Female
  Weight: 77 kg

DRUGS (21)
  1. ZYVOX [Suspect]
     Indication: STAPHYLOCOCCAL INFECTION
     Dosage: 1200 MG (600 MG, BID INTERVAL: EVERY DAY)
     Dates: start: 20050801, end: 20050902
  2. PROTONIX [Concomitant]
  3. COLACE (DOCUSATE SODIUM) [Concomitant]
  4. IRON (IRON) [Concomitant]
  5. HYDROCORTISONE [Concomitant]
  6. PLAQUENIL [Concomitant]
  7. INSULIN [Concomitant]
  8. PREVACID [Concomitant]
  9. LOPRESSOR [Concomitant]
  10. METRONIDAZOLE [Concomitant]
  11. NYSTATIN [Concomitant]
  12. TACROLIMUS (TACROLIMUS) [Concomitant]
  13. COMBIVENT [Concomitant]
  14. ATIVAN [Concomitant]
  15. OXYCONTIN [Concomitant]
  16. FENTANYL [Concomitant]
  17. FLORINEF [Concomitant]
  18. LOVENOX [Concomitant]
  19. ARANESP [Concomitant]
  20. MULTIVIRTAMINS (MULTIVIRAMINS) [Concomitant]
  21. VANCOMYCIN [Concomitant]

REACTIONS (3)
  - BLOOD LACTIC ACID INCREASED [None]
  - RENAL FAILURE ACUTE [None]
  - URINARY TRACT INFECTION [None]
